FAERS Safety Report 23134386 (Version 1)
Quarter: 2023Q4

REPORT INFORMATION
  Report Type: Spontaneous
  Country: US (occurrence: US)
  Receive Date: 20231101
  Receipt Date: 20231101
  Transmission Date: 20240110
  Serious: No
  Sender: FDA-Public Use
  Company Number: US-BEH-2023164833

PATIENT
  Sex: Female

DRUGS (24)
  1. HAEGARDA [Suspect]
     Active Substance: HUMAN C1-ESTERASE INHIBITOR
     Indication: Hereditary angioedema
     Dosage: 5220 INTERNATIONAL UNIT, BIW (EVERY 3-4 DAYS)
     Route: 058
     Dates: start: 20201229
  2. ACID REDUCER [RANITIDINE HYDROCHLORIDE] [Concomitant]
  3. ALBUTEROL SULFATE [Concomitant]
     Active Substance: ALBUTEROL SULFATE
  4. AMMONIUM LACTATE [Concomitant]
     Active Substance: AMMONIUM LACTATE
  5. CLOTRIMAZOLE [Concomitant]
     Active Substance: CLOTRIMAZOLE
  6. DILTIAZEM [Concomitant]
     Active Substance: DILTIAZEM
  7. ERYTHROMYCIN [Concomitant]
     Active Substance: ERYTHROMYCIN
  8. FAMOTIDINE [Concomitant]
     Active Substance: FAMOTIDINE
  9. FLUOCINOLONE ACETONIDE [Concomitant]
     Active Substance: FLUOCINOLONE ACETONIDE
  10. FLUTICASONE [Concomitant]
     Active Substance: FLUTICASONE
  11. HYDROCODONE BITARTRATE AND ACETAMINOPHEN [Concomitant]
     Active Substance: ACETAMINOPHEN\HYDROCODONE BITARTRATE
  12. ICATIBANT [Concomitant]
     Active Substance: ICATIBANT ACETATE
  13. LIDO/PRILOCAINE [Concomitant]
  14. LIDOCAINE [Concomitant]
     Active Substance: LIDOCAINE
  15. LIDOCAINE [Concomitant]
     Active Substance: LIDOCAINE
  16. MICATIN [Concomitant]
     Active Substance: MICONAZOLE NITRATE
  17. NICOTINE [Concomitant]
     Active Substance: NICOTINE
  18. OMEPRAZOLE [Concomitant]
     Active Substance: OMEPRAZOLE
  19. SERTRALINE [Concomitant]
     Active Substance: SERTRALINE HYDROCHLORIDE
  20. NICOTINE [Concomitant]
     Active Substance: NICOTINE
  21. STIOLTO RESPIMAT [Concomitant]
     Active Substance: OLODATEROL HYDROCHLORIDE\TIOTROPIUM BROMIDE MONOHYDRATE
  22. SUMATRIPTAN [Concomitant]
     Active Substance: SUMATRIPTAN
  23. TRAZODONE [Concomitant]
     Active Substance: TRAZODONE HYDROCHLORIDE
  24. VITAMIN C [Concomitant]
     Active Substance: ASCORBIC ACID

REACTIONS (1)
  - Chromaturia [Not Recovered/Not Resolved]
